FAERS Safety Report 15753866 (Version 1)
Quarter: 2018Q4

REPORT INFORMATION
  Report Type: Spontaneous
  Country: GB (occurrence: GB)
  Receive Date: 20181222
  Receipt Date: 20181222
  Transmission Date: 20190205
  Serious: Yes (Hospitalization)
  Sender: FDA-Public Use
  Company Number: GB-TEVA-2018-GB-989566

PATIENT
  Age: 48 Year
  Sex: Male

DRUGS (3)
  1. CHLORPHENAMINE [Suspect]
     Active Substance: CHLORPHENIRAMINE MALEATE
     Dosage: 4 MILLIGRAM DAILY;
     Route: 048
  2. FEXOFENADINE [Suspect]
     Active Substance: FEXOFENADINE\FEXOFENADINE HYDROCHLORIDE
     Dosage: 180 MILLIGRAM DAILY;
     Route: 048
  3. GINKGO BILOBA [Suspect]
     Active Substance: GINKGO
     Dosage: 90 MILLIGRAM DAILY; PATIENT SAYS DOESN^T TAKE EVERY DAY BUT HAS BEEN TAKING MORE REGULARLY RECENTLY.
     Route: 048
     Dates: start: 20171101

REACTIONS (5)
  - Vomiting [Recovering/Resolving]
  - Electrocardiogram ST segment depression [Recovered/Resolved]
  - Atrial fibrillation [Recovered/Resolved]
  - Dizziness [Recovered/Resolved]
  - Palpitations [Recovered/Resolved]

NARRATIVE: CASE EVENT DATE: 20181119
